FAERS Safety Report 9039698 (Version 1)
Quarter: 2013Q1

REPORT INFORMATION
  Report Type: Report from Study
  Country: US (occurrence: US)
  Receive Date: 20130130
  Receipt Date: 20130130
  Transmission Date: 20140127
  Serious: No
  Sender: FDA-Public Use
  Company Number: US-ABBOTT-12P-163-0944549-00

PATIENT
  Age: 42 Year
  Sex: Female

DRUGS (13)
  1. HUMIRA 40 MG/0.8 ML PEN [Suspect]
     Indication: CROHN^S DISEASE
     Dates: start: 20120314
  2. MESALAMINE [Concomitant]
     Indication: CROHN^S DISEASE
  3. MIRTAZAPINE [Concomitant]
     Indication: ANTIDEPRESSANT THERAPY
     Dosage: DAILY
     Route: 048
  4. DEPO-PROVERA [Concomitant]
     Indication: CONTRACEPTION
  5. ZYRTEC [Concomitant]
     Indication: HYPERSENSITIVITY
     Route: 048
  6. LORAZEPAM [Concomitant]
     Indication: ANXIETY
     Route: 048
  7. PRILOSEC [Concomitant]
     Indication: GASTROOESOPHAGEAL REFLUX DISEASE
     Dosage: 1-2 CAPSULES DAILY AS NEEDED
     Route: 048
  8. DICYCLOMINE [Concomitant]
     Indication: MUSCLE SPASMS
     Dosage: 3 PER DAY AS NEEDED
     Route: 048
  9. TRAMADOL [Concomitant]
     Indication: PAIN
     Dosage: 50-100MG AS NEEDED
     Route: 048
  10. LOPERAMIDE [Concomitant]
     Indication: DIARRHOEA
  11. HYDROXYZINE PAMOATE [Concomitant]
     Indication: NAUSEA
  12. FISH OIL [Concomitant]
     Indication: PRODUCT USED FOR UNKNOWN INDICATION
     Route: 048
  13. VITAMIN D [Concomitant]
     Indication: PRODUCT USED FOR UNKNOWN INDICATION
     Route: 048

REACTIONS (2)
  - Injection site pain [Not Recovered/Not Resolved]
  - Alopecia [Not Recovered/Not Resolved]
